FAERS Safety Report 22074207 (Version 1)
Quarter: 2023Q1

REPORT INFORMATION
  Report Type: Spontaneous
  Country: CN (occurrence: CN)
  Receive Date: 20230308
  Receipt Date: 20230308
  Transmission Date: 20230418
  Serious: Yes (Other)
  Sender: FDA-Public Use
  Company Number: CN-002147023-NVSC2023CN048595

PATIENT
  Age: 71 Year
  Sex: Female
  Weight: 70 kg

DRUGS (6)
  1. ENTRESTO [Suspect]
     Active Substance: SACUBITRIL\VALSARTAN
     Indication: Cardiac failure
     Dosage: 200 MG, QD
     Route: 048
     Dates: start: 20230216, end: 20230221
  2. SULPERAZONE [Suspect]
     Active Substance: CEFOPERAZONE SODIUM\SULBACTAM SODIUM
     Indication: Infection
     Dosage: 3 G, BID (INTRAVENOUS DRIP)
     Route: 042
     Dates: start: 20230215, end: 20230221
  3. SODIUM CHLORIDE [Concomitant]
     Active Substance: SODIUM CHLORIDE
     Indication: Product used for unknown indication
     Dosage: 100 ML, QD (INTRAVENOUS DRIP)
     Route: 042
     Dates: start: 20230214, end: 20230217
  4. SODIUM CHLORIDE [Concomitant]
     Active Substance: SODIUM CHLORIDE
     Dosage: 100 ML, BID (INTRAVENOUS DRIP)
     Route: 042
     Dates: start: 20230215, end: 20230221
  5. METOPROLOL SUCCINATE [Concomitant]
     Active Substance: METOPROLOL SUCCINATE
     Indication: Hypertension
     Dosage: 47.50 MG, QD (SUSTAINED RELEASE TABLETS)
     Route: 048
     Dates: start: 20230216, end: 20230227
  6. AMLODIPINE BESYLATE [Concomitant]
     Active Substance: AMLODIPINE BESYLATE
     Indication: Hypertension
     Dosage: 5 MG, QD
     Route: 048
     Dates: start: 20230216, end: 20230227

REACTIONS (2)
  - Renal failure [Recovering/Resolving]
  - Off label use [Unknown]

NARRATIVE: CASE EVENT DATE: 20230218
